FAERS Safety Report 8240506-0 (Version None)
Quarter: 2012Q1

REPORT INFORMATION
  Report Type: 
  Country: None (occurrence: None)
  Receive Date: 20120328
  Receipt Date: 20120315
  Transmission Date: 20120608
  Serious: Yes (Other)
  Sender: FDA-Public Use
  Company Number: DZ-ROCHE-1052086

PATIENT
  Sex: Female

DRUGS (1)
  1. AVASTIN [Suspect]
     Indication: BREAST CANCER
     Dates: end: 20111214

REACTIONS (3)
  - JAUNDICE [None]
  - LABORATORY TEST ABNORMAL [None]
  - GENERAL PHYSICAL HEALTH DETERIORATION [None]
